FAERS Safety Report 10615254 (Version 3)
Quarter: 2014Q4

REPORT INFORMATION
  Report Type: Spontaneous
  Country: JP (occurrence: None)
  Receive Date: 20141125
  Receipt Date: 20141219
  Transmission Date: 20150529
  Serious: Yes (Death, Hospitalization, Other)
  Sender: FDA-Public Use
  Company Number: PIN-2014-00015

PATIENT
  Age: 70 Year
  Sex: Male

DRUGS (7)
  1. THYRADIN S (LEVOTHYROXINE SODIUM) [Concomitant]
  2. PARIET (RABEPRAZOLE SODIUM) [Concomitant]
  3. PHOTOFRIN [Suspect]
     Active Substance: PORFIMER SODIUM
     Indication: OESOPHAGEAL CARCINOMA
     Route: 042
     Dates: start: 20140415, end: 20140415
  4. CINAL (GRANULES) (ASCORBIC ACID, CALCIUM PANTOTHENATE) [Concomitant]
  5. GASTROM (ECABET MONOSODIUM) [Concomitant]
  6. BEPRICOR (BEPRIDIL HYDROCHLORIDE MONOHYDRATE) [Concomitant]
  7. ALLOID G (SODIUM ALGINATE) [Concomitant]

REACTIONS (14)
  - Mediastinitis [None]
  - Pyrexia [None]
  - Hypophagia [None]
  - Renal failure [None]
  - Tracheal disorder [None]
  - Tracheal fistula [None]
  - Necrosis [None]
  - Pulmonary oedema [None]
  - Dialysis [None]
  - Oesophageal perforation [None]
  - Dysphagia [None]
  - Platelet count decreased [None]
  - Pleural effusion [None]
  - Haemoglobin decreased [None]

NARRATIVE: CASE EVENT DATE: 20140421
